FAERS Safety Report 16793638 (Version 3)
Quarter: 2019Q4

REPORT INFORMATION
  Report Type: Spontaneous
  Country: US (occurrence: US)
  Receive Date: 20190911
  Receipt Date: 20191004
  Transmission Date: 20200122
  Serious: No
  Sender: FDA-Public Use
  Company Number: US-SHIRE-US201929567

PATIENT
  Sex: Female

DRUGS (3)
  1. XIIDRA [Suspect]
     Active Substance: LIFITEGRAST
     Indication: DRY EYE
     Dosage: 1 GTT DROPS, 2X/DAY:BID
     Route: 047
     Dates: start: 20190819
  2. ARTIFICIAL TEARS [HYPROMELLOSE] [Concomitant]
     Indication: DRY EYE
  3. RESTASIS [Concomitant]
     Active Substance: CYCLOSPORINE
     Indication: DRY EYE

REACTIONS (4)
  - Eye irritation [Unknown]
  - Dysgeusia [Unknown]
  - Lacrimation increased [Unknown]
  - Adverse event [Unknown]
